FAERS Safety Report 22895559 (Version 6)
Quarter: 2025Q3

REPORT INFORMATION
  Report Type: Spontaneous
  Country: JP (occurrence: JP)
  Receive Date: 20230901
  Receipt Date: 20250809
  Transmission Date: 20251020
  Serious: Yes (Death, Hospitalization, Other)
  Sender: ALEXION PHARMACEUTICALS
  Company Number: 2023A195523

PATIENT
  Age: 78 Year
  Sex: Male
  Weight: 62 kg

DRUGS (6)
  1. LYNPARZA [Suspect]
     Active Substance: OLAPARIB
     Dosage: 300 MILLIGRAM, BID
     Dates: start: 20230605, end: 20230714
  2. LYNPARZA [Suspect]
     Active Substance: OLAPARIB
  3. PREDNISOLONE [Concomitant]
     Active Substance: PREDNISOLONE
     Dosage: 5 MILLIGRAM, BID
     Dates: start: 202205
  4. BONALON [Concomitant]
     Active Substance: ALENDRONATE SODIUM
     Dosage: 35 MILLIGRAM, QW
     Dates: start: 20220802
  5. LOXOPROFEN SODIUM [Concomitant]
     Active Substance: LOXOPROFEN SODIUM
     Dosage: 60 MILLIGRAM, TID
     Dates: end: 20230611
  6. REBAMIPIDE [Concomitant]
     Active Substance: REBAMIPIDE
     Dosage: 100 MILLIGRAM, TID
     Dates: end: 20230611

REACTIONS (12)
  - Interstitial lung disease [Recovered/Resolved]
  - Anaemia [Unknown]
  - Malignant neoplasm progression [Unknown]
  - Malaise [Unknown]
  - Back pain [Recovering/Resolving]
  - Oedema [Unknown]
  - Nasopharyngitis [Unknown]
  - Arthralgia [Unknown]
  - Blood pressure decreased [Unknown]
  - Nasopharyngitis [Unknown]
  - Blood pressure decreased [Unknown]
  - Neoplasm malignant [Fatal]

NARRATIVE: CASE EVENT DATE: 20230612
